FAERS Safety Report 6272354-5 (Version None)
Quarter: 2009Q3

REPORT INFORMATION
  Report Type: 
  Country: None (occurrence: None)
  Receive Date: 20090717
  Receipt Date: 20090708
  Transmission Date: 20100115
  Serious: Yes (Hospitalization)
  Sender: FDA-Public Use
  Company Number: JP-JNJFOC-20090702638

PATIENT
  Sex: Male

DRUGS (8)
  1. REMICADE [Suspect]
     Route: 042
  2. REMICADE [Suspect]
     Indication: RHEUMATOID ARTHRITIS
     Route: 042
  3. FOSAMAC [Concomitant]
     Route: 048
  4. RHEUMATREX [Concomitant]
     Indication: RHEUMATOID ARTHRITIS
     Route: 048
  5. FOLIAMIN [Concomitant]
     Route: 048
  6. PREDNISOLONE [Concomitant]
     Route: 048
  7. HYPEN [Concomitant]
     Route: 048
  8. MUCOSTA [Concomitant]
     Route: 048

REACTIONS (3)
  - DIZZINESS [None]
  - HERPES ZOSTER [None]
  - PYREXIA [None]
